FAERS Safety Report 21915684 (Version 3)
Quarter: 2023Q1

REPORT INFORMATION
  Report Type: Spontaneous
  Country: SK (occurrence: SK)
  Receive Date: 20230126
  Receipt Date: 20230207
  Transmission Date: 20230418
  Serious: Yes (Hospitalization, Other)
  Sender: FDA-Public Use
  Company Number: SK-MLMSERVICE-20230118-4050878-1

PATIENT
  Age: 44 Year
  Sex: Male

DRUGS (9)
  1. CLINDAMYCIN PALMITATE HYDROCHLORIDE [Suspect]
     Active Substance: CLINDAMYCIN PALMITATE HYDROCHLORIDE
     Indication: Prophylaxis
     Dosage: A REDUCED DOSE OF 600 MG 2 TIMES PER DAY
     Route: 042
     Dates: start: 2021, end: 2021
  2. FLUCONAZOLE [Suspect]
     Active Substance: FLUCONAZOLE
     Indication: Candida infection
     Dosage: 150 MG PER DAY
     Route: 048
     Dates: start: 2021, end: 2021
  3. FLUCONAZOLE [Suspect]
     Active Substance: FLUCONAZOLE
     Indication: Enterococcal infection
  4. FLUCONAZOLE [Suspect]
     Active Substance: FLUCONAZOLE
     Indication: Acinetobacter infection
  5. MEROPENEM [Suspect]
     Active Substance: MEROPENEM
     Indication: Evidence based treatment
     Dosage: 1 G 3 TIMES PER DAY
     Route: 042
     Dates: start: 2021, end: 2021
  6. CIPROFLOXACIN [Suspect]
     Active Substance: CIPROFLOXACIN
     Indication: Candida infection
     Dosage: 400 MG TWICE PER DAY
     Route: 042
     Dates: start: 2021, end: 2021
  7. CIPROFLOXACIN [Suspect]
     Active Substance: CIPROFLOXACIN
     Indication: Acinetobacter infection
  8. CIPROFLOXACIN [Suspect]
     Active Substance: CIPROFLOXACIN
     Indication: Enterococcal infection
  9. VANCOMYCIN [Suspect]
     Active Substance: VANCOMYCIN
     Indication: Evidence based treatment
     Dosage: 1 G 2 TIMES PER DAY
     Route: 042
     Dates: start: 2021, end: 2021

REACTIONS (6)
  - Drug-induced liver injury [Recovering/Resolving]
  - Normochromic normocytic anaemia [Recovering/Resolving]
  - Leukocytosis [Recovering/Resolving]
  - Cholestatic liver injury [Recovering/Resolving]
  - Thrombocytosis [Recovering/Resolving]
  - Vanishing bile duct syndrome [Recovering/Resolving]

NARRATIVE: CASE EVENT DATE: 20211101
